FAERS Safety Report 4541828-7 (Version None)
Quarter: 2004Q4

REPORT INFORMATION
  Report Type: 
  Country: None (occurrence: None)
  Receive Date: 20041227
  Receipt Date: 20041214
  Transmission Date: 20050328
  Serious: Yes (Hospitalization)
  Sender: FDA-Public Use
  Company Number: 2004050834

PATIENT
  Age: 26 Year
  Sex: Female
  Weight: 64 kg

DRUGS (1)
  1. ZOLOFT [Suspect]
     Indication: DEPRESSION
     Dosage: 100 MG (1 IN 1 D), ORAL
     Route: 048
     Dates: start: 20031210

REACTIONS (9)
  - ANTEPARTUM HAEMORRHAGE [None]
  - ANXIETY [None]
  - ARRESTED LABOUR [None]
  - CAESAREAN SECTION [None]
  - DRUG EXPOSURE DURING PREGNANCY [None]
  - PLACENTA PRAEVIA [None]
  - PREGNANCY [None]
  - UMBILICAL CORD AROUND NECK [None]
  - WEIGHT INCREASED [None]
